FAERS Safety Report 11906192 (Version 1)
Quarter: 2016Q1

REPORT INFORMATION
  Report Type: Spontaneous
  Country: US (occurrence: None)
  Receive Date: 20160108
  Receipt Date: 20160108
  Transmission Date: 20160526
  Serious: Yes (Other)
  Sender: FDA-Public Use
  Company Number: None

PATIENT
  Age: 62 Year
  Sex: Female
  Weight: 89.36 kg

DRUGS (7)
  1. MUPIROCIN OINTMENT, USP 2% PERRIGO [Suspect]
     Active Substance: MUPIROCIN
     Indication: ROSACEA
     Dosage: SMALL AMOUNT, ENOUGH TO COVER; APPLIED TO A SURFACE, USUALLY THE SKIN
     Route: 061
     Dates: start: 20151228, end: 20160105
  2. CITALOPRAM [Concomitant]
     Active Substance: CITALOPRAM HYDROBROMIDE
  3. BENADRYL [Concomitant]
     Active Substance: DIPHENHYDRAMINE HYDROCHLORIDE
  4. BIOTIN [Concomitant]
     Active Substance: BIOTIN
  5. ZYTREC [Concomitant]
  6. MUPIROCIN OINTMENT, USP 2% PERRIGO [Suspect]
     Active Substance: MUPIROCIN
     Indication: INFECTION
     Dosage: SMALL AMOUNT, ENOUGH TO COVER; APPLIED TO A SURFACE, USUALLY THE SKIN
     Route: 061
     Dates: start: 20151228, end: 20160105
  7. L-THYROXINE [Concomitant]
     Active Substance: LEVOTHYROXINE

REACTIONS (1)
  - Drug hypersensitivity [None]

NARRATIVE: CASE EVENT DATE: 20160104
